FAERS Safety Report 9783297 (Version 1)
Quarter: 2013Q4

REPORT INFORMATION
  Report Type: Spontaneous
  Country: GB (occurrence: None)
  Receive Date: 20131223
  Receipt Date: 20131223
  Transmission Date: 20140711
  Serious: Yes (Other)
  Sender: FDA-Public Use
  Company Number: GB-PMX02-13-00034

PATIENT
  Age: 52 Year
  Sex: Male

DRUGS (1)
  1. OSMOHALE [Suspect]
     Indication: PULMONARY FUNCTION CHALLENGE TEST
     Dosage: 635 MG (TOTAL) RESPIRATORY (INHALATION)
     Route: 055
     Dates: start: 20130509, end: 20130509

REACTIONS (1)
  - Oxygen saturation decreased [None]
